FAERS Safety Report 25441226 (Version 1)
Quarter: 2025Q2

REPORT INFORMATION
  Report Type: Spontaneous
  Country: BR (occurrence: BR)
  Receive Date: 20250616
  Receipt Date: 20250616
  Transmission Date: 20250717
  Serious: Yes (Other)
  Sender: Alora Pharma
  Company Number: BR-VERTICAL PHARMACEUTICALS-2025ALO02285

PATIENT
  Sex: Female

DRUGS (5)
  1. ESTRADIOL [Suspect]
     Active Substance: ESTRADIOL
     Indication: Hormone replacement therapy
     Dates: start: 2016, end: 2020
  2. ESTRADIOL [Suspect]
     Active Substance: ESTRADIOL
     Dates: start: 2020
  3. QUETIAPINE FUMARATE [Concomitant]
     Active Substance: QUETIAPINE FUMARATE
  4. RISPERIDONE [Concomitant]
     Active Substance: RISPERIDONE
  5. SERTRALINE [Concomitant]
     Active Substance: SERTRALINE HYDROCHLORIDE

REACTIONS (6)
  - Schizophrenia [Unknown]
  - Arthralgia [Unknown]
  - Pain [Unknown]
  - Pain in extremity [Unknown]
  - Hypertension [Recovered/Resolved]
  - Blood glucose increased [Recovered/Resolved]
